FAERS Safety Report 19501145 (Version 2)
Quarter: 2021Q4

REPORT INFORMATION
  Report Type: Report from Study
  Country: MX (occurrence: MX)
  Receive Date: 20210707
  Receipt Date: 20211116
  Transmission Date: 20220303
  Serious: Yes (Death, Other)
  Sender: FDA-Public Use
  Company Number: MX-NOVARTISPH-NVSC2021MX151843

PATIENT
  Sex: Female
  Weight: 68 kg

DRUGS (1)
  1. VOTRIENT [Suspect]
     Active Substance: PAZOPANIB HYDROCHLORIDE
     Indication: Renal cancer
     Dosage: 125 MG, QD (2 TABLET)
     Route: 048
     Dates: start: 20210414, end: 20210514

REACTIONS (11)
  - Death [Fatal]
  - Brain neoplasm malignant [Unknown]
  - Second primary malignancy [Unknown]
  - Pulmonary mass [Unknown]
  - Joint range of motion decreased [Unknown]
  - Alopecia [Unknown]
  - Gait disturbance [Unknown]
  - Dizziness [Unknown]
  - Eye disorder [Unknown]
  - Mobility decreased [Unknown]
  - Aphasia [Unknown]
